FAERS Safety Report 24561771 (Version 1)
Quarter: 2024Q4

REPORT INFORMATION
  Report Type: Spontaneous
  Country: US (occurrence: None)
  Receive Date: 20241029
  Receipt Date: 20241029
  Transmission Date: 20250114
  Serious: Yes (Other)
  Sender: Public
  Company Number: None

PATIENT
  Age: 39 Year
  Sex: Female

DRUGS (1)
  1. IMATINIB [Suspect]
     Active Substance: IMATINIB
     Dosage: FREQUENCY : DAILY;?

REACTIONS (7)
  - Chronic cutaneous lupus erythematosus [None]
  - Periorbital oedema [None]
  - Rash [None]
  - Photosensitivity reaction [None]
  - Drug ineffective [None]
  - Skin hyperpigmentation [None]
  - Antinuclear antibody increased [None]

NARRATIVE: CASE EVENT DATE: 20241023
